FAERS Safety Report 6834344-0 (Version None)
Quarter: 2010Q3

REPORT INFORMATION
  Report Type: 
  Country: None (occurrence: None)
  Receive Date: 20100712
  Receipt Date: 20100701
  Transmission Date: 20110219
  Serious: Yes (Life-Threatening)
  Sender: FDA-Public Use
  Company Number: US-BRISTOL-MYERS SQUIBB COMPANY-15174048

PATIENT
  Age: 13 Year

DRUGS (2)
  1. ABILIFY [Suspect]
  2. SEROQUEL [Suspect]

REACTIONS (1)
  - CARDIAC ARREST [None]
